FAERS Safety Report 8981497 (Version 6)
Quarter: 2013Q4

REPORT INFORMATION
  Report Type: Spontaneous
  Country: IE (occurrence: IE)
  Receive Date: 20121221
  Receipt Date: 20131212
  Transmission Date: 20140711
  Serious: No
  Sender: FDA-Public Use
  Company Number: PHFR2012IE006325

PATIENT
  Sex: Female

DRUGS (6)
  1. CLOZARIL [Suspect]
     Indication: SCHIZOPHRENIA, PARANOID TYPE
     Dosage: 350 MG, UNK
     Route: 048
     Dates: start: 2004
  2. CLOZARIL [Suspect]
     Indication: SCHIZOPHRENIA
     Dosage: UNK
     Route: 048
     Dates: start: 20061117, end: 201212
  3. GLUCOPHAGE [Concomitant]
     Dosage: 500 UKN, BID
  4. ELTROXIN [Concomitant]
     Dosage: 150 UG, QD
  5. ARIPIPRAZOLE [Concomitant]
     Dosage: UNK
  6. RISPERIDONE [Concomitant]
     Dosage: UNK

REACTIONS (1)
  - Urinary tract infection [Unknown]
